FAERS Safety Report 6222648-4 (Version None)
Quarter: 2009Q2

REPORT INFORMATION
  Report Type: 
  Country: None (occurrence: None)
  Receive Date: 20090609
  Receipt Date: 20090609
  Transmission Date: 20091009
  Serious: Yes (Disabling)
  Sender: FDA-Public Use
  Company Number: None

PATIENT
  Sex: Female

DRUGS (1)
  1. READI-CAT [Suspect]
     Indication: COMPUTERISED TOMOGRAM
     Dosage: 450 ML ONE TIME PO
     Route: 048
     Dates: start: 20090529, end: 20090529

REACTIONS (5)
  - DYSPNOEA [None]
  - FLUSHING [None]
  - PRURITUS [None]
  - URTICARIA [None]
  - WHEEZING [None]
